FAERS Safety Report 16573225 (Version 1)
Quarter: 2019Q3

REPORT INFORMATION
  Report Type: Report from Study
  Country: ES (occurrence: ES)
  Receive Date: 20190715
  Receipt Date: 20190715
  Transmission Date: 20191004
  Serious: Yes (Life-Threatening, Hospitalization)
  Sender: FDA-Public Use
  Company Number: ES-TEVA-2019-ES-1076670

PATIENT
  Age: 68 Year
  Sex: Female

DRUGS (4)
  1. LACOSAMIDA (8279A) [Interacting]
     Active Substance: LACOSAMIDE
     Indication: TRIGEMINAL NEURALGIA
     Dosage: 200  MILLIGRAM
     Route: 040
     Dates: start: 20190325, end: 20190325
  2. CARBAMAZEPINA (561A) [Suspect]
     Active Substance: CARBAMAZEPINE
     Indication: TRIGEMINAL NEURALGIA
     Dosage: 700 MILLIGRAM FOR EVERY 1 DAYS
     Dates: start: 201104, end: 20190325
  3. GABAPENTINA (2641A) [Suspect]
     Active Substance: GABAPENTIN
     Indication: TRIGEMINAL NEURALGIA
     Dosage: 600 MILLIGRAM FOR EVERY 1 DAYS
     Route: 048
     Dates: start: 201902, end: 20190325
  4. LIORESAL [Interacting]
     Active Substance: BACLOFEN
     Indication: TRIGEMINAL NEURALGIA
     Route: 048
     Dates: start: 201802, end: 20190325

REACTIONS (2)
  - Depressed level of consciousness [Recovered/Resolved]
  - Drug interaction [Unknown]

NARRATIVE: CASE EVENT DATE: 20190325
